FAERS Safety Report 9604571 (Version 3)
Quarter: 2013Q4

REPORT INFORMATION
  Report Type: Report from Study
  Country: KE (occurrence: KE)
  Receive Date: 20131008
  Receipt Date: 20131031
  Transmission Date: 20140711
  Serious: Yes (Death)
  Sender: FDA-Public Use
  Company Number: KE-009507513-1309KEN011805

PATIENT
  Age: 39 Year
  Sex: Male

DRUGS (12)
  1. RALTEGRAVIR POTASSIUM [Suspect]
     Dosage: UNK
     Dates: start: 20130827, end: 20130928
  2. SULFAMETHOXAZOLE (+) TRIMETHOPRIM [Interacting]
     Dosage: UNK
     Route: 048
     Dates: start: 20130823, end: 20130928
  3. TENOFOVIR [Interacting]
     Dosage: UNK
     Dates: start: 20130827, end: 20130928
  4. FLUCONAZOLE [Interacting]
     Dosage: UNK
     Dates: start: 20130925, end: 20130928
  5. AMPHOTERICIN B [Interacting]
     Dosage: UNK
     Dates: start: 20130925, end: 20130928
  6. CEFTRIAXONE SODIUM [Interacting]
     Dosage: UNK
     Dates: start: 20130926, end: 20130928
  7. ACYCLOVIR [Suspect]
     Dosage: UNK
     Dates: start: 20130916, end: 20130924
  8. EFAVIRENZ [Concomitant]
     Dosage: UNK
     Dates: start: 20130827, end: 20130928
  9. EMTRICITABINE [Concomitant]
     Dosage: UNK
     Dates: start: 20130827, end: 20130928
  10. OMEPRAZOLE [Concomitant]
     Dosage: UNK
     Dates: start: 20130926, end: 20130928
  11. FLAGYL [Concomitant]
     Dosage: UNK
     Dates: start: 20130926, end: 20130928
  12. CHLORAMPHENICOL [Concomitant]
     Dosage: UNK
     Dates: start: 20130916, end: 20130924

REACTIONS (4)
  - Encephalitis [Fatal]
  - Meningitis cryptococcal [Fatal]
  - Hyperkalaemia [Fatal]
  - Renal failure acute [Fatal]
